FAERS Safety Report 12979550 (Version 2)
Quarter: 2017Q2

REPORT INFORMATION
  Report Type: Spontaneous
  Country: GB (occurrence: GB)
  Receive Date: 20161128
  Receipt Date: 20170503
  Transmission Date: 20170830
  Serious: Yes (Life-Threatening, Other)
  Sender: FDA-Public Use
  Company Number: GB-PFIZER INC-2016542497

PATIENT
  Age: 24 Year
  Sex: Male
  Weight: 77 kg

DRUGS (10)
  1. AZTREONAM. [Concomitant]
     Active Substance: AZTREONAM
  2. ATRACURIUM [Concomitant]
     Active Substance: ATRACURIUM
  3. NORADRENALIN [Concomitant]
     Active Substance: NOREPINEPHRINE\NOREPINEPHRINE BITARTRATE
  4. MORPHINE [Concomitant]
     Active Substance: MORPHINE
  5. CHLORPROMAZINE. [Concomitant]
     Active Substance: CHLORPROMAZINE
  6. AMOXICILLIN. [Concomitant]
     Active Substance: AMOXICILLIN
  7. MIDAZOLAM [Concomitant]
     Active Substance: MIDAZOLAM HYDROCHLORIDE
  8. RANITIDINE. [Concomitant]
     Active Substance: RANITIDINE
  9. PROPOFOL. [Suspect]
     Active Substance: PROPOFOL
     Dosage: 5.2 MG/KG 400MG/ HOUR
     Route: 042
     Dates: start: 20160903, end: 20160904
  10. CYPROHEPTADINE. [Concomitant]
     Active Substance: CYPROHEPTADINE

REACTIONS (2)
  - Serotonin syndrome [Recovered/Resolved]
  - Disease recurrence [Recovered/Resolved]

NARRATIVE: CASE EVENT DATE: 20160903
